FAERS Safety Report 15036496 (Version 1)
Quarter: 2018Q2

REPORT INFORMATION
  Report Type: Spontaneous
  Country: CA (occurrence: CA)
  Receive Date: 20180620
  Receipt Date: 20180620
  Transmission Date: 20180711
  Serious: Yes (Other)
  Sender: FDA-Public Use
  Company Number: CA-PFIZER INC-2018232961

PATIENT
  Age: 61 Year
  Sex: Female

DRUGS (5)
  1. SULFASALAZINE. [Suspect]
     Active Substance: SULFASALAZINE
     Dosage: 400 MG, DAILY
     Dates: start: 201211, end: 201803
  2. METHOTREXATE. [Concomitant]
     Active Substance: METHOTREXATE
     Dosage: 15 MG, WEEKLY, INJECTION
     Dates: start: 201207
  3. HYDROXYCHLOROQUINE [Concomitant]
     Active Substance: HYDROXYCHLOROQUINE
     Dosage: 400 MG, DAILY
     Dates: start: 201206, end: 201803
  4. BRENZYS [Concomitant]
     Active Substance: ETANERCEPT
     Dosage: 50 MG, WEEKLY
  5. LEFLUNOMIDE. [Concomitant]
     Active Substance: LEFLUNOMIDE
     Dosage: 20 MG, 1X/DAY
     Dates: start: 201612, end: 201705

REACTIONS (3)
  - Joint injury [Unknown]
  - Osteonecrosis [Unknown]
  - Drug effect incomplete [Unknown]
